FAERS Safety Report 10009572 (Version 1)
Quarter: 2014Q1

REPORT INFORMATION
  Report Type: Spontaneous
  Country: US (occurrence: US)
  Receive Date: 20140312
  Receipt Date: 20140312
  Transmission Date: 20141002
  Serious: No
  Sender: FDA-Public Use
  Company Number: US-INCYTE CORPORATION-2012IN001984

PATIENT
  Age: 65 Year
  Sex: Female

DRUGS (7)
  1. JAKAFI [Suspect]
     Indication: MYELOFIBROSIS
     Dosage: 20 MG, BID
     Route: 048
     Dates: start: 201112
  2. JAKAFI [Suspect]
     Dosage: 5 MG, QD
     Route: 048
  3. JAKAFI [Suspect]
     Dosage: 10 MG, QD
     Route: 048
  4. JAKAFI [Suspect]
     Dosage: 10 MG, BID
     Dates: start: 20120808
  5. HYDROCHLOROTHIAZIDE [Concomitant]
     Dosage: 12.5 MG, QD
  6. NEXIUM [Concomitant]
     Dosage: 40 MG, QD
  7. ENALAPRIL [Concomitant]
     Dosage: 5 MG, TID

REACTIONS (3)
  - Blood creatinine increased [Unknown]
  - Blood count abnormal [Unknown]
  - Hypoaesthesia [Recovered/Resolved]
